FAERS Safety Report 5535916-6 (Version None)
Quarter: 2007Q4

REPORT INFORMATION
  Report Type: 
  Country: None (occurrence: None)
  Receive Date: 20071206
  Receipt Date: 20071130
  Transmission Date: 20080405
  Serious: Yes (Life-Threatening, Hospitalization, Other)
  Sender: FDA-Public Use
  Company Number: HQWYE992421SEP06

PATIENT
  Sex: Female
  Weight: 25 kg

DRUGS (14)
  1. MYLOTARG [Suspect]
     Indication: ACUTE MYELOID LEUKAEMIA RECURRENT
     Route: 041
     Dates: start: 20060703, end: 20060703
  2. MYLOTARG [Suspect]
     Route: 041
     Dates: start: 20060724, end: 20060724
  3. MEROPEN [Concomitant]
     Indication: PROPHYLAXIS
     Route: 041
     Dates: start: 20060506, end: 20060809
  4. MINOCYCLINE HYDROCHLORIDE [Concomitant]
     Indication: PROPHYLAXIS
     Route: 041
     Dates: start: 20060522, end: 20060910
  5. CYTARABINE [Concomitant]
     Indication: ACUTE MYELOID LEUKAEMIA RECURRENT
     Dosage: UNKNOWN
     Route: 042
     Dates: start: 20060811, end: 20060822
  6. CYTARABINE [Concomitant]
     Dosage: UNKNOWN
     Route: 042
     Dates: start: 20060913, end: 20060921
  7. CYTARABINE [Concomitant]
     Dosage: UNKNOWN
     Route: 042
     Dates: start: 20060930, end: 20061008
  8. CYTARABINE [Concomitant]
     Dosage: UNKNOWN
     Route: 042
     Dates: start: 20061023, end: 20061101
  9. CYTARABINE [Concomitant]
     Dosage: UNKNOWN
     Route: 042
     Dates: start: 20061105, end: 20061107
  10. LASIX [Concomitant]
     Route: 042
     Dates: start: 20060530, end: 20060718
  11. ACYCLOVIR [Concomitant]
     Indication: PROPHYLAXIS
     Route: 041
     Dates: start: 20060630, end: 20060723
  12. MORPHINE HCL ELIXIR [Concomitant]
     Route: 041
     Dates: start: 20060522
  13. KEITEN [Concomitant]
     Indication: PROPHYLAXIS
     Route: 041
     Dates: start: 20060522, end: 20060706
  14. VFEND [Concomitant]
     Indication: PROPHYLAXIS
     Route: 041
     Dates: start: 20060506

REACTIONS (5)
  - BLOOD PRESSURE DECREASED [None]
  - COAGULOPATHY [None]
  - MENINGITIS [None]
  - SEPSIS [None]
  - WEIGHT INCREASED [None]
